FAERS Safety Report 14613686 (Version 2)
Quarter: 2018Q1

REPORT INFORMATION
  Report Type: Spontaneous
  Country: FR (occurrence: FR)
  Receive Date: 20180308
  Receipt Date: 20180316
  Transmission Date: 20180509
  Serious: Yes (Death, Hospitalization, Other)
  Sender: FDA-Public Use
  Company Number: FR-SA-2018SA060295

PATIENT
  Age: 95 Year
  Sex: Male
  Weight: 55 kg

DRUGS (12)
  1. PERINDOPRIL [Concomitant]
     Active Substance: PERINDOPRIL
     Dosage: MORNING
     Route: 048
  2. BISOPROLOL [Concomitant]
     Active Substance: BISOPROLOL
     Dosage: MORNING
     Route: 048
  3. LANZOR [Concomitant]
     Active Substance: LANSOPRAZOLE
     Dosage: EVENING
     Route: 048
  4. MACROGOL [Concomitant]
     Active Substance: POLYETHYLENE GLYCOLS
  5. PREVISCAN (FLUINDIONE) [Suspect]
     Active Substance: FLUINDIONE
     Indication: ATRIAL FIBRILLATION
     Dosage: FREQUENCY : IN EVENING
     Route: 048
     Dates: start: 20170405
  6. MIRTAZAPINE. [Concomitant]
     Active Substance: MIRTAZAPINE
     Dosage: MORNING
     Route: 048
  7. CLOPIDOGREL BISULFATE. [Suspect]
     Active Substance: CLOPIDOGREL BISULFATE
     Indication: ISCHAEMIC CARDIOMYOPATHY
     Dosage: FREAQUENCY : IN MORNING
     Route: 048
     Dates: start: 20150529
  8. AMIODARONE [Concomitant]
     Active Substance: AMIODARONE
     Dosage: MORNING
     Route: 048
  9. INSULIN DETEMIR [Concomitant]
     Active Substance: INSULIN DETEMIR
     Dosage: DOSE AND FREQUENCY :8 BUI IN THE MORNING
     Route: 065
  10. FUROSEMIDE. [Concomitant]
     Active Substance: FUROSEMIDE
     Route: 048
  11. SALMETEROL [Concomitant]
     Active Substance: SALMETEROL
     Dosage: 1 IN THE MORNING AND 1 IN THE EVENING: DOSE AND FREQUENCY
     Route: 055
  12. SPIRIVA [Concomitant]
     Active Substance: TIOTROPIUM BROMIDE MONOHYDRATE
     Dosage: MORNING
     Route: 065

REACTIONS (7)
  - Rectal haemorrhage [Not Recovered/Not Resolved]
  - Angiodysplasia [Unknown]
  - Bacteraemia [Unknown]
  - Pyelonephritis acute [Unknown]
  - Chronic kidney disease [Unknown]
  - Anaemia [Not Recovered/Not Resolved]
  - Death [Fatal]

NARRATIVE: CASE EVENT DATE: 20170627
